FAERS Safety Report 17442248 (Version 1)
Quarter: 2020Q1

REPORT INFORMATION
  Report Type: Spontaneous
  Country: CN (occurrence: CN)
  Receive Date: 20200220
  Receipt Date: 20200220
  Transmission Date: 20200409
  Serious: Yes (Life-Threatening)
  Sender: FDA-Public Use
  Company Number: CN-BAYER-2020-025809

PATIENT
  Age: 61 Year
  Sex: Male
  Weight: 65 kg

DRUGS (1)
  1. AVELOX [Suspect]
     Active Substance: MOXIFLOXACIN HYDROCHLORIDE
     Indication: PNEUMONIA
     Dosage: 0.4 G, QD
     Route: 041
     Dates: start: 20191123, end: 20191123

REACTIONS (8)
  - Contraindicated product administered [None]
  - Altered state of consciousness [Recovered/Resolved]
  - Slow response to stimuli [Recovered/Resolved]
  - Muscle twitching [Recovered/Resolved]
  - Blood pressure increased [Recovered/Resolved]
  - Respiratory rate increased [Recovering/Resolving]
  - Heart rate increased [Recovered/Resolved]
  - Off label use [None]

NARRATIVE: CASE EVENT DATE: 20191123
